FAERS Safety Report 24779223 (Version 1)
Quarter: 2024Q4

REPORT INFORMATION
  Report Type: Spontaneous
  Country: CN (occurrence: CN)
  Receive Date: 20241226
  Receipt Date: 20241226
  Transmission Date: 20250115
  Serious: Yes (Other)
  Sender: CSL BEHRING
  Company Number: CN-BEH-2024187753

PATIENT
  Age: 78 Year
  Sex: Male
  Weight: 60 kg

DRUGS (1)
  1. ALBUMIN HUMAN [Suspect]
     Active Substance: ALBUMIN HUMAN
     Indication: Gastrointestinal haemorrhage
     Dosage: 20 G, QD
     Route: 041
     Dates: start: 20241125, end: 20241130

REACTIONS (7)
  - Asthma [Recovering/Resolving]
  - Pruritus [Recovered/Resolved]
  - Papule [Recovered/Resolved]
  - Swelling [Unknown]
  - Joint stiffness [Unknown]
  - Hypoaesthesia [Unknown]
  - Dyspnoea [Recovering/Resolving]

NARRATIVE: CASE EVENT DATE: 20241130
